FAERS Safety Report 23334496 (Version 3)
Quarter: 2025Q3

REPORT INFORMATION
  Report Type: Spontaneous
  Country: EU (occurrence: EU)
  Receive Date: 20231224
  Receipt Date: 20250814
  Transmission Date: 20251021
  Serious: Yes (Death, Other)
  Sender: AUROBINDO
  Company Number: EU-SUN PHARMACEUTICAL INDUSTRIES LTD-2022R1-331138

PATIENT

DRUGS (7)
  1. AZACITIDINE [Suspect]
     Active Substance: AZACITIDINE
     Indication: Acute myeloid leukaemia
     Route: 058
  2. IADADEMSTAT [Suspect]
     Active Substance: IADADEMSTAT
     Indication: Acute myeloid leukaemia
     Route: 048
  3. IADADEMSTAT [Suspect]
     Active Substance: IADADEMSTAT
     Dosage: UNK, ONCE A DAY (WITH DEESCALATION TO 60 MUG/M2 PER DAY)
     Route: 048
  4. IADADEMSTAT [Suspect]
     Active Substance: IADADEMSTAT
     Route: 048
  5. IADADEMSTAT [Suspect]
     Active Substance: IADADEMSTAT
     Route: 048
  6. IADADEMSTAT [Suspect]
     Active Substance: IADADEMSTAT
     Dosage: 20 MICROGRAM, ONCE A DAY (20 ?G OF IADADEMSTAT FREE BASE PER ML)
     Route: 048
  7. IADADEMSTAT [Suspect]
     Active Substance: IADADEMSTAT
     Dosage: UNK, ONCE A DAY (90 MUG/M2 PER DAY)
     Route: 048

REACTIONS (1)
  - Haemorrhage intracranial [Fatal]
